FAERS Safety Report 17840493 (Version 1)
Quarter: 2020Q2

REPORT INFORMATION
  Report Type: Spontaneous
  Country: US (occurrence: US)
  Receive Date: 20200529
  Receipt Date: 20200529
  Transmission Date: 20200714
  Serious: Yes (Hospitalization)
  Sender: FDA-Public Use
  Company Number: US-PFIZER INC-2020211573

PATIENT
  Age: 72 Year
  Sex: Female
  Weight: 60 kg

DRUGS (6)
  1. XELJANZ XR [Suspect]
     Active Substance: TOFACITINIB CITRATE
     Indication: RHEUMATOID ARTHRITIS
     Dosage: 11 MG, 1X/DAY
     Route: 048
     Dates: start: 2017
  2. VITAMIN A [COLECALCIFEROL;RETINOL] [Concomitant]
     Active Substance: CHOLECALCIFEROL\RETINOL
     Dosage: UNK
  3. VITAMIN B [Concomitant]
     Active Substance: VITAMIN B
     Dosage: UNK
  4. VITAMIN C [Concomitant]
     Active Substance: ASCORBIC ACID
     Dosage: UNK
  5. VITAMIN D [COLECALCIFEROL] [Concomitant]
     Active Substance: CHOLECALCIFEROL
     Dosage: UNK
  6. ZINC. [Concomitant]
     Active Substance: ZINC
     Dosage: UNK

REACTIONS (2)
  - Lower limb fracture [Recovered/Resolved]
  - Arthropathy [Unknown]

NARRATIVE: CASE EVENT DATE: 202001
